FAERS Safety Report 15451827 (Version 3)
Quarter: 2018Q4

REPORT INFORMATION
  Report Type: Spontaneous
  Country: US (occurrence: US)
  Receive Date: 20181001
  Receipt Date: 20181211
  Transmission Date: 20190204
  Serious: No
  Sender: FDA-Public Use
  Company Number: US-PFIZER INC-2018395506

PATIENT
  Age: 47 Year
  Sex: Female

DRUGS (2)
  1. ZOLOFT [Suspect]
     Active Substance: SERTRALINE HYDROCHLORIDE
     Indication: MAJOR DEPRESSION
     Dosage: 25 MG, DAILY, (50 MG 1/2 DAILY)
     Route: 048
     Dates: start: 20180426
  2. ZOLOFT [Suspect]
     Active Substance: SERTRALINE HYDROCHLORIDE
     Dosage: 50 MG, DAILY (INCREASE TO 50 MG AFTER 3-4 DAYS)
     Route: 048

REACTIONS (2)
  - Extrapyramidal disorder [Recovered/Resolved]
  - Drug hypersensitivity [Recovered/Resolved]

NARRATIVE: CASE EVENT DATE: 201806
